FAERS Safety Report 14850631 (Version 1)
Quarter: 2018Q2

REPORT INFORMATION
  Report Type: Report from Study
  Country: BE (occurrence: BE)
  Receive Date: 20180506
  Receipt Date: 20180506
  Transmission Date: 20180711
  Serious: Yes (Other)
  Sender: FDA-Public Use
  Company Number: BE-EMD SERONO-9021752

PATIENT
  Sex: Female

DRUGS (2)
  1. REBIF [Suspect]
     Active Substance: INTERFERON BETA-1A
     Indication: PRODUCT USED FOR UNKNOWN INDICATION
     Route: 058
  2. REBIF [Suspect]
     Active Substance: INTERFERON BETA-1A

REACTIONS (4)
  - Staphylococcal skin infection [Recovering/Resolving]
  - Skin ulcer [Recovering/Resolving]
  - Injection site necrosis [Recovering/Resolving]
  - Poor peripheral circulation [Unknown]

NARRATIVE: CASE EVENT DATE: 201804
